FAERS Safety Report 25224855 (Version 2)
Quarter: 2025Q2

REPORT INFORMATION
  Report Type: Report from Study
  Country: US (occurrence: US)
  Receive Date: 20250422
  Receipt Date: 20250501
  Transmission Date: 20250717
  Serious: Yes (Hospitalization)
  Sender: ACADIA PHARMACEUTICALS
  Company Number: US-ACADIA PHARMACEUTICALS INC.-ACA-2025-PIM-004552

PATIENT
  Age: 76 Year
  Sex: Female

DRUGS (10)
  1. NUPLAZID [Suspect]
     Active Substance: PIMAVANSERIN TARTRATE
     Indication: Parkinson^s disease psychosis
     Dosage: 34 MILLIGRAM, QD
     Route: 048
     Dates: start: 20250204
  2. NUPLAZID [Suspect]
     Active Substance: PIMAVANSERIN TARTRATE
     Dosage: 34 MILLIGRAM, QD
     Route: 048
     Dates: start: 20250221
  3. OXYCODONE AND ACETAMINOPHEN [Concomitant]
     Active Substance: ACETAMINOPHEN\OXYCODONE HYDROCHLORIDE
  4. ACETAMINOPHEN [Concomitant]
     Active Substance: ACETAMINOPHEN
  5. DULOXETINE [Concomitant]
     Active Substance: DULOXETINE
  6. CARBIDOPA\LEVODOPA [Concomitant]
     Active Substance: CARBIDOPA\LEVODOPA
  7. ROPINIROLE [Concomitant]
     Active Substance: ROPINIROLE
  8. TRESIBA [Concomitant]
     Active Substance: INSULIN DEGLUDEC
  9. NOVOLIN N [Concomitant]
     Active Substance: INSULIN HUMAN
  10. NEBIVOLOL [Concomitant]
     Active Substance: NEBIVOLOL

REACTIONS (5)
  - Chest pain [Recovered/Resolved]
  - Malaise [Recovered/Resolved]
  - Blood glucose increased [Unknown]
  - Ligament sprain [Unknown]
  - Product dose omission issue [Recovered/Resolved]

NARRATIVE: CASE EVENT DATE: 20250406
